FAERS Safety Report 6932150-X (Version None)
Quarter: 2010Q3

REPORT INFORMATION
  Report Type: 
  Country: None (occurrence: None)
  Receive Date: 20100819
  Receipt Date: 20100810
  Transmission Date: 20110219
  Serious: Yes (Other)
  Sender: FDA-Public Use
  Company Number: B0569852A

PATIENT
  Age: 54 Year
  Sex: Male

DRUGS (2)
  1. ALLOPURINOL [Suspect]
     Dosage: 100MG PER DAY
     Route: 065
  2. AMOXICILLIN [Suspect]
     Route: 065

REACTIONS (15)
  - ALANINE AMINOTRANSFERASE ABNORMAL [None]
  - ASPARTATE AMINOTRANSFERASE ABNORMAL [None]
  - CONJUNCTIVITIS [None]
  - DERMATITIS [None]
  - DRUG HYPERSENSITIVITY [None]
  - DRUG RASH WITH EOSINOPHILIA AND SYSTEMIC SYMPTOMS [None]
  - EOSINOPHILIA [None]
  - FACE OEDEMA [None]
  - HEPATIC FUNCTION ABNORMAL [None]
  - LIVER DISORDER [None]
  - LYMPHADENOPATHY [None]
  - MOUTH ULCERATION [None]
  - RASH [None]
  - RASH MACULO-PAPULAR [None]
  - WHITE BLOOD CELL COUNT ABNORMAL [None]
